FAERS Safety Report 11032265 (Version 1)
Quarter: 2015Q2

REPORT INFORMATION
  Report Type: Spontaneous
  Country: US (occurrence: None)
  Receive Date: 20150414
  Receipt Date: 20150414
  Transmission Date: 20150821
  Serious: Yes (Hospitalization)
  Sender: FDA-Public Use
  Company Number: 2015AMD00050

PATIENT
  Age: 49 Year
  Sex: Male

DRUGS (1)
  1. EPINEPHRINE (EPINEPHRINE)  INTRAVENOUS [Suspect]
     Active Substance: EPINEPHRINE HYDROCHLORIDE
     Indication: ATRIOVENTRICULAR BLOCK
     Route: 042

REACTIONS (1)
  - Stress cardiomyopathy [None]
